FAERS Safety Report 8435520-6 (Version None)
Quarter: 2012Q2

REPORT INFORMATION
  Report Type: 
  Country: None (occurrence: None)
  Receive Date: 20120614
  Receipt Date: 20120605
  Transmission Date: 20120825
  Serious: Yes (Hospitalization)
  Sender: FDA-Public Use
  Company Number: JP-VERTEX PHARMACEUTICALS INC.-AE-2012-004979

PATIENT
  Age: 64 Year
  Sex: Female

DRUGS (6)
  1. PEG-INTRON [Concomitant]
     Route: 058
     Dates: start: 20120418
  2. PEG-INTRON [Concomitant]
     Indication: HEPATITIS C
     Route: 058
     Dates: start: 20120228, end: 20120403
  3. REBETOL [Concomitant]
     Route: 048
     Dates: start: 20120418
  4. LANSOPRAZOLE [Concomitant]
     Route: 048
     Dates: start: 20120404
  5. TELAVIC (TELAPREVIR) [Suspect]
     Indication: HEPATITIS C
     Route: 048
     Dates: start: 20120228, end: 20120403
  6. REBETOL [Concomitant]
     Indication: HEPATITIS C
     Route: 048
     Dates: start: 20120228, end: 20120403

REACTIONS (1)
  - ERYTHEMA MULTIFORME [None]
